FAERS Safety Report 20815831 (Version 3)
Quarter: 2022Q3

REPORT INFORMATION
  Report Type: Spontaneous
  Country: US (occurrence: US)
  Receive Date: 20220511
  Receipt Date: 20220825
  Transmission Date: 20221026
  Serious: No
  Sender: FDA-Public Use
  Company Number: US-BRISTOL-MYERS SQUIBB COMPANY-2022-021659

PATIENT
  Age: 63 Year
  Sex: Male

DRUGS (3)
  1. REVLIMID [Suspect]
     Active Substance: LENALIDOMIDE
     Indication: Plasma cell myeloma
     Dosage: DOSE: 5 MILLIGRAM, FREQ: TAKE 1 CAPSULE BY MOUTH DAILY FOR 21 DAYS, THEN REST 7 DAYS EVERY 28 DAYS
     Route: 048
  2. REVLIMID [Suspect]
     Active Substance: LENALIDOMIDE
     Dosage: TAKE 1 CAPSULE BY MOUTH EVERY DAY FOR 21 DAYS ON, THEN REST 7 DAYS EVERY 28 DAYS
     Route: 048
  3. REVLIMID [Suspect]
     Active Substance: LENALIDOMIDE
     Route: 048

REACTIONS (3)
  - Wrong product administered [Unknown]
  - Peripheral swelling [Unknown]
  - Product dose omission issue [Unknown]
